FAERS Safety Report 8265500-5 (Version None)
Quarter: 2012Q2

REPORT INFORMATION
  Report Type: 
  Country: None (occurrence: None)
  Receive Date: 20120406
  Receipt Date: 20120402
  Transmission Date: 20120825
  Serious: Yes (Other)
  Sender: FDA-Public Use
  Company Number: US-PFIZER INC-2012083699

PATIENT
  Sex: Male
  Weight: 74.83 kg

DRUGS (4)
  1. LIPITOR [Suspect]
     Indication: BLOOD CHOLESTEROL INCREASED
     Dosage: 40 MG, 1X/DAY
     Route: 048
  2. METOPROLOL [Concomitant]
     Dosage: UNK
  3. PROSCAR [Concomitant]
     Dosage: UNK
  4. TAMSULOSIN HYDROCHLORIDE [Concomitant]
     Dosage: UNK

REACTIONS (1)
  - PARKINSONISM [None]
